FAERS Safety Report 7962944-3 (Version None)
Quarter: 2011Q4

REPORT INFORMATION
  Report Type: 
  Country: None (occurrence: None)
  Receive Date: 20111207
  Receipt Date: 20111205
  Transmission Date: 20120403
  Serious: Yes (Other)
  Sender: FDA-Public Use
  Company Number: US-ELI_LILLY_AND_COMPANY-US201109000781

PATIENT
  Age: 65 Year
  Sex: Male

DRUGS (4)
  1. LANTUS [Concomitant]
     Dosage: UNK
  2. METFORMIN HCL [Concomitant]
     Dosage: UNK
  3. HUMALOG [Suspect]
     Dosage: 30 U, OTHER
     Dates: start: 20100101
  4. HUMALOG [Suspect]
     Indication: TYPE 2 DIABETES MELLITUS
     Dosage: 30 U, OTHER
     Dates: start: 20100101

REACTIONS (4)
  - TRANSMISSION OF AN INFECTIOUS AGENT VIA A MEDICINAL PRODUCT [None]
  - DAYDREAMING [None]
  - VISUAL IMPAIRMENT [None]
  - EXPOSURE TO CONTAMINATED DEVICE [None]
